FAERS Safety Report 16280306 (Version 1)
Quarter: 2019Q2

REPORT INFORMATION
  Report Type: Spontaneous
  Country: US (occurrence: US)
  Receive Date: 20190401
  Receipt Date: 20190401
  Transmission Date: 20190711
  Serious: No
  Sender: FDA-Public Use
  Company Number: None

PATIENT
  Age: 57 Year
  Sex: Female

DRUGS (4)
  1. TEMOZOLOMIDE CAP 250MG [Suspect]
     Active Substance: TEMOZOLOMIDE
     Dates: start: 20190322
  2. LAMICTAL [Concomitant]
     Active Substance: LAMOTRIGINE
  3. TRAMADOL. [Concomitant]
     Active Substance: TRAMADOL
  4. BACLOFEN. [Concomitant]
     Active Substance: BACLOFEN

REACTIONS (1)
  - Fatigue [None]

NARRATIVE: CASE EVENT DATE: 20190401
